FAERS Safety Report 8711417 (Version 3)
Quarter: 2012Q4

REPORT INFORMATION
  Report Type: 
  Country: FR (occurrence: FR)
  Receive Date: 20120807
  Receipt Date: 20120924
  Transmission Date: 20130627
  Serious: Yes (Other)
  Sender: FDA-Public Use
  Company Number: FR-JNJFOC-20120715159

PATIENT
  Age: 15 None
  Sex: Female
  Weight: 58 kg

DRUGS (2)
  1. RISPERDAL [Suspect]
     Indication: ABNORMAL BEHAVIOUR
     Route: 048
     Dates: start: 20110117, end: 20120119
  2. MICROPAKINE [Concomitant]
     Indication: EPILEPSY
     Route: 048
     Dates: start: 20100614, end: 20120119

REACTIONS (2)
  - Epilepsy [Recovering/Resolving]
  - Weight increased [Recovering/Resolving]
